FAERS Safety Report 10258427 (Version 1)
Quarter: 2014Q2

REPORT INFORMATION
  Report Type: Spontaneous
  Country: CH (occurrence: CH)
  Receive Date: 20140625
  Receipt Date: 20140625
  Transmission Date: 20141212
  Serious: Yes (Hospitalization)
  Sender: FDA-Public Use
  Company Number: CH-PFIZER INC-2014174685

PATIENT
  Age: 89 Year
  Sex: Male

DRUGS (8)
  1. CORDARONE [Suspect]
     Indication: CARDIAC FLUTTER
     Dosage: 100 MG, DAILY
     Route: 048
     Dates: start: 2008, end: 20131216
  2. PLAVIX [Suspect]
     Indication: ATRIAL FIBRILLATION
     Dosage: 75 MG, DAILY
     Route: 048
     Dates: start: 2008, end: 20131015
  3. XGEVA [Suspect]
     Indication: PROSTATE CANCER METASTATIC
     Dosage: 120 MG, MONTHLY
     Route: 058
     Dates: start: 20131119, end: 20131213
  4. CASODEX [Concomitant]
     Indication: PROSTATE CANCER METASTATIC
     Dosage: 50 MG, DAILY
     Dates: start: 20130916, end: 20131017
  5. PAMORELIN [Concomitant]
     Indication: PROSTATE CANCER METASTATIC
     Dosage: 22.5 MG, AT 6 MONTH INTERVALS
     Route: 030
     Dates: start: 20130927
  6. ASPIRINE [Concomitant]
     Dosage: UNK
     Dates: start: 20131107
  7. LANTUS [Concomitant]
     Indication: INSULIN-REQUIRING TYPE 2 DIABETES MELLITUS
     Dosage: UNK
     Dates: start: 2011
  8. ZANTIC [Concomitant]
     Indication: DUODENAL ULCER
     Dosage: UNK
     Dates: start: 2008

REACTIONS (4)
  - Hyperthyroidism [Not Recovered/Not Resolved]
  - Subdural haematoma [Recovered/Resolved]
  - Hypocalcaemia [Not Recovered/Not Resolved]
  - Prostate cancer metastatic [Unknown]
